FAERS Safety Report 21873686 (Version 3)
Quarter: 2023Q1

REPORT INFORMATION
  Report Type: Spontaneous
  Country: JP (occurrence: JP)
  Receive Date: 20230117
  Receipt Date: 20230322
  Transmission Date: 20230418
  Serious: Yes (Hospitalization)
  Sender: FDA-Public Use
  Company Number: JP-Eisai-202213126_HAL-STS_P_1

PATIENT
  Sex: Female

DRUGS (3)
  1. HALAVEN [Suspect]
     Active Substance: ERIBULIN MESYLATE
     Indication: Leiomyosarcoma
     Dosage: DOSE UNKNOWN
     Route: 041
  2. HALAVEN [Suspect]
     Active Substance: ERIBULIN MESYLATE
     Dosage: DOSE UNKNOWN
     Route: 041
     Dates: end: 2022
  3. HALAVEN [Suspect]
     Active Substance: ERIBULIN MESYLATE
     Dosage: DOSE UNKNOWN
     Route: 041
     Dates: start: 2022

REACTIONS (1)
  - Melaena [Recovered/Resolved]

NARRATIVE: CASE EVENT DATE: 20220601
